FAERS Safety Report 6736069-9 (Version None)
Quarter: 2010Q2

REPORT INFORMATION
  Report Type: 
  Country: None (occurrence: None)
  Receive Date: 20100521
  Receipt Date: 20100510
  Transmission Date: 20101027
  Serious: Yes (Hospitalization, Other)
  Sender: FDA-Public Use
  Company Number: NL-PFIZER INC-2010058932

PATIENT
  Age: 70 Year
  Sex: Female

DRUGS (14)
  1. AMLODIPINE BESYLATE [Suspect]
     Indication: HYPERTENSION
     Dosage: 5 MG, 1X/DAY
     Route: 048
     Dates: end: 20100121
  2. ISOSORBIDE MONONITRATE [Suspect]
     Indication: HYPERTENSION
     Dosage: 25 MG, 1X/DAY
     Route: 048
  3. INVESTIGATIONAL DRUG [Suspect]
     Dosage: SECOND DOSE
     Route: 030
     Dates: start: 20090930, end: 20090930
  4. FRUSEMIDE [Suspect]
     Indication: HYPERTENSION
     Dosage: 40 MG, 1X/DAY
     Route: 048
  5. FRUSEMIDE [Suspect]
     Dosage: 20 MG, 1X/DAY
     Route: 048
  6. ENALAPRIL [Suspect]
     Indication: HYPERTENSION
     Dosage: 10 MG, 1X/DAY
     Route: 048
  7. METOPROLOL [Suspect]
     Indication: HYPERTENSION
     Dosage: 200 MG, 1X/DAY
     Route: 048
  8. PRAVASTATIN [Concomitant]
     Dosage: UNK
     Dates: end: 20100225
  9. METFORMIN HYDROCHLORIDE [Concomitant]
  10. ACETYLSALICYLIC ACID [Concomitant]
     Dosage: UNK
     Dates: end: 20100225
  11. DIPYRIDAMOLE [Concomitant]
  12. SINTROM [Concomitant]
     Dosage: UNK
     Dates: start: 20100109, end: 20100225
  13. INSULIN GLARGINE [Concomitant]
  14. INSULIN ASPART [Concomitant]
     Dosage: UNK
     Dates: start: 20100121

REACTIONS (1)
  - TRANSIENT ISCHAEMIC ATTACK [None]
